FAERS Safety Report 21005512 (Version 1)
Quarter: 2022Q2

REPORT INFORMATION
  Report Type: Spontaneous
  Country: US (occurrence: None)
  Receive Date: 20220624
  Receipt Date: 20220624
  Transmission Date: 20220721
  Serious: Yes (Other)
  Sender: FDA-Public Use
  Company Number: 2022A229860

PATIENT

DRUGS (1)
  1. ANDEXXA [Suspect]
     Active Substance: ANDEXANET ALFA
     Route: 040

REACTIONS (1)
  - Pulmonary embolism [Unknown]
